FAERS Safety Report 5646668-3 (Version None)
Quarter: 2008Q1

REPORT INFORMATION
  Report Type: 
  Country: None (occurrence: None)
  Receive Date: 20080303
  Receipt Date: 20080223
  Transmission Date: 20080703
  Serious: Yes (Hospitalization)
  Sender: FDA-Public Use
  Company Number: PHHO2008FI02680

PATIENT
  Age: 73 Year
  Sex: Male

DRUGS (4)
  1. STALEVO VS CARBIDOPA/LEVODOPA [Suspect]
     Indication: PARKINSON'S DISEASE
     Dosage: 100 MG, UNK
     Dates: start: 20071219, end: 20080121
  2. SINEMET [Suspect]
  3. ATARIN [Concomitant]
  4. FINASTERIDE [Concomitant]

REACTIONS (7)
  - AMNESIA [None]
  - ANTISOCIAL BEHAVIOUR [None]
  - DELIRIUM [None]
  - DISORIENTATION [None]
  - DRUG ADMINISTRATION ERROR [None]
  - HALLUCINATION, VISUAL [None]
  - MINI MENTAL STATUS EXAMINATION ABNORMAL [None]
